FAERS Safety Report 9680358 (Version 2)
Quarter: 2013Q4

REPORT INFORMATION
  Report Type: Spontaneous
  Country: US (occurrence: US)
  Receive Date: 20131111
  Receipt Date: 20131203
  Transmission Date: 20140711
  Serious: Yes (Other)
  Sender: FDA-Public Use
  Company Number: US-ACCORD-020222

PATIENT
  Age: 29 Year
  Sex: Female

DRUGS (2)
  1. COUMADIN [Suspect]
     Indication: ANTIPLATELET THERAPY
     Route: 048
  2. MYCOPHENOLATE MOFETIL [Suspect]
     Indication: LUPUS NEPHRITIS
     Route: 048
     Dates: end: 20131025

REACTIONS (4)
  - Ectopic pregnancy [Unknown]
  - Vaginal haemorrhage [Unknown]
  - Human chorionic gonadotropin decreased [Unknown]
  - Abortion spontaneous [Unknown]
